FAERS Safety Report 6273433-9 (Version None)
Quarter: 2009Q3

REPORT INFORMATION
  Report Type: 
  Country: None (occurrence: None)
  Receive Date: 20090720
  Receipt Date: 20090708
  Transmission Date: 20100115
  Serious: Yes (Hospitalization, Other)
  Sender: FDA-Public Use
  Company Number: PHHY2009GB28610

PATIENT
  Age: 60 Year
  Sex: Male

DRUGS (6)
  1. CYCLOSPORINE [Suspect]
     Indication: RENAL TRANSPLANT
     Dosage: 50 MG, BID
     Dates: start: 19890101
  2. PREDNISOLONE [Suspect]
     Indication: RENAL TRANSPLANT
     Dosage: 10 MG, QD
  3. CYCLOPHOSPHAMIDE [Concomitant]
     Indication: LYMPHOPROLIFERATIVE DISORDER
  4. HYDROXYDOXORUBICIN [Concomitant]
     Indication: LYMPHOPROLIFERATIVE DISORDER
  5. ONCOVIN [Concomitant]
     Indication: LYMPHOPROLIFERATIVE DISORDER
  6. PREDNISONE [Concomitant]
     Indication: LYMPHOPROLIFERATIVE DISORDER

REACTIONS (17)
  - ACINETOBACTER INFECTION [None]
  - BILIARY DILATATION [None]
  - CHOLECYSTECTOMY [None]
  - DISSEMINATED INTRAVASCULAR COAGULATION [None]
  - ESCHERICHIA SEPSIS [None]
  - HAEMORRHAGE [None]
  - HEPATIC CYST [None]
  - INFECTED CYST [None]
  - JAUNDICE [None]
  - LIVER OPERATION [None]
  - LYMPHOPROLIFERATIVE DISORDER [None]
  - MALAISE [None]
  - PURULENCE [None]
  - PYREXIA [None]
  - RENAL CYST [None]
  - UMBILICAL HERNIA REPAIR [None]
  - WOUND INFECTION [None]
